FAERS Safety Report 8019517-6 (Version None)
Quarter: 2012Q1

REPORT INFORMATION
  Report Type: 
  Country: None (occurrence: None)
  Receive Date: 20120103
  Receipt Date: 20111229
  Transmission Date: 20120608
  Serious: Yes (Life-Threatening, Other)
  Sender: FDA-Public Use
  Company Number: PHHY2011CA098420

PATIENT
  Sex: Female

DRUGS (6)
  1. ZOLEDRONOC ACID [Suspect]
     Dosage: 5MG
     Route: 042
     Dates: start: 20091120
  2. PREVACID [Concomitant]
     Dosage: 30 MG, QD
  3. LEVOTHYROXINE SODIUM [Concomitant]
     Dosage: 0.675 UKN, UNK
  4. ZOLEDRONOC ACID [Suspect]
     Indication: OSTEOPOROSIS
     Dosage: 5MG
     Route: 042
     Dates: start: 20081120
  5. ZOLEDRONOC ACID [Suspect]
     Dosage: 5MG
     Route: 042
     Dates: start: 20101112
  6. DOCUSATE [Concomitant]
     Dosage: UNK UKN, UNK

REACTIONS (1)
  - BREAST CANCER [None]
